FAERS Safety Report 12385392 (Version 1)
Quarter: 2016Q2

REPORT INFORMATION
  Report Type: Spontaneous
  Country: ES (occurrence: ES)
  Receive Date: 20160519
  Receipt Date: 20160519
  Transmission Date: 20160815
  Serious: Yes (Death, Hospitalization, Other)
  Sender: FDA-Public Use
  Company Number: ES-INCYTE CORPORATION-2016IN002734

PATIENT
  Age: 54 Year
  Sex: Male

DRUGS (3)
  1. HYDREA [Concomitant]
     Active Substance: HYDROXYUREA
     Indication: LEUKOCYTOSIS
     Dosage: 500 OT, BID
     Route: 065
  2. JAKAFI [Suspect]
     Active Substance: RUXOLITINIB
     Indication: PRODUCT USED FOR UNKNOWN INDICATION
     Dosage: 20 MG, BID
     Route: 048
     Dates: start: 20151124, end: 20160305
  3. MEROPENEM. [Concomitant]
     Active Substance: MEROPENEM
     Indication: PRODUCT USED FOR UNKNOWN INDICATION
     Route: 065

REACTIONS (8)
  - Multiple organ dysfunction syndrome [Fatal]
  - Sepsis [Unknown]
  - Acute respiratory failure [Unknown]
  - Influenza [Unknown]
  - Hypotension [Unknown]
  - Platelet count decreased [Unknown]
  - Haemoglobin decreased [Unknown]
  - Respiratory distress [Unknown]

NARRATIVE: CASE EVENT DATE: 20160305
